FAERS Safety Report 12715670 (Version 1)
Quarter: 2016Q3

REPORT INFORMATION
  Report Type: Spontaneous
  Country: FR (occurrence: FR)
  Receive Date: 20160906
  Receipt Date: 20160906
  Transmission Date: 20161109
  Serious: Yes (Death)
  Sender: FDA-Public Use
  Company Number: FR-ROCHE-1825216

PATIENT
  Age: 59 Year
  Sex: Female

DRUGS (2)
  1. BELUSTINE [Suspect]
     Active Substance: LOMUSTINE
     Indication: GLIOBLASTOMA
     Route: 048
     Dates: start: 20150603, end: 20160321
  2. AVASTIN [Suspect]
     Active Substance: BEVACIZUMAB
     Indication: GLIOBLASTOMA
     Route: 042
     Dates: start: 20150603, end: 20160321

REACTIONS (6)
  - Renal failure [Fatal]
  - Off label use [Fatal]
  - Product use issue [Fatal]
  - Confusional state [Fatal]
  - Hyperkalaemia [Fatal]
  - Anuria [Fatal]

NARRATIVE: CASE EVENT DATE: 20160319
